FAERS Safety Report 10035566 (Version 1)
Quarter: 2014Q1

REPORT INFORMATION
  Report Type: Spontaneous
  Country: US (occurrence: US)
  Receive Date: 20140325
  Receipt Date: 20140325
  Transmission Date: 20141002
  Serious: Yes (Other)
  Sender: FDA-Public Use
  Company Number: US-SA-2014SA033420

PATIENT
  Age: 72 Year
  Sex: Female

DRUGS (7)
  1. LANTUS SOLOSTAR [Suspect]
     Indication: TYPE 2 DIABETES MELLITUS
     Dosage: DOSE:30 UNIT(S)
     Route: 065
  2. LANTUS SOLOSTAR [Suspect]
     Indication: TYPE 2 DIABETES MELLITUS
     Dosage: DOSE:25 UNIT(S)
     Route: 065
  3. LANTUS SOLOSTAR [Suspect]
     Indication: TYPE 2 DIABETES MELLITUS
     Dosage: DOSE:20 UNIT(S)
     Route: 065
  4. SOLOSTAR [Concomitant]
     Indication: DEVICE THERAPY
  5. METFORMIN [Concomitant]
  6. JANUVIA [Concomitant]
  7. PROZAC [Concomitant]

REACTIONS (8)
  - Cataract operation [Unknown]
  - Anxiety [Unknown]
  - Malaise [Unknown]
  - Cerebrovascular accident [Unknown]
  - Head injury [Unknown]
  - Nervous system disorder [Unknown]
  - Visual impairment [Unknown]
  - Blood glucose increased [Unknown]
